FAERS Safety Report 19442546 (Version 1)
Quarter: 2021Q2

REPORT INFORMATION
  Report Type: Spontaneous
  Country: US (occurrence: US)
  Receive Date: 20210618
  Receipt Date: 20210618
  Transmission Date: 20210717
  Serious: Yes (Hospitalization)
  Sender: FDA-Public Use
  Company Number: None

PATIENT
  Age: 57 Year
  Sex: Male

DRUGS (12)
  1. AMLODIPINE [Concomitant]
     Active Substance: AMLODIPINE BESYLATE
  2. ATORVASTATIN [Concomitant]
     Active Substance: ATORVASTATIN
  3. TRAMADOL HCL [Concomitant]
     Active Substance: TRAMADOL HYDROCHLORIDE
  4. CLOPIDOGREL [Concomitant]
     Active Substance: CLOPIDOGREL BISULFATE
  5. ISOSORB MONO ER [Concomitant]
     Active Substance: ISOSORBIDE MONONITRATE
  6. ASPIRIN. [Concomitant]
     Active Substance: ASPIRIN
  7. CANDESARTAN. [Concomitant]
     Active Substance: CANDESARTAN
  8. LEXOFLOXACIN [Concomitant]
  9. IMATINIB MES 400MG TAB [Suspect]
     Active Substance: IMATINIB MESYLATE
     Indication: GASTROINTESTINAL STROMAL TUMOUR
     Dosage: ?          OTHER FREQUENCY:QPM;?
     Route: 048
     Dates: start: 20170607
  10. CARVEDILOL. [Concomitant]
     Active Substance: CARVEDILOL
  11. FLUTICASONE SPR [Concomitant]
  12. PANTOPRAZOLE [Concomitant]
     Active Substance: PANTOPRAZOLE

REACTIONS (2)
  - Therapy interrupted [None]
  - Prostatic operation [None]

NARRATIVE: CASE EVENT DATE: 20210617
